FAERS Safety Report 5479218-5 (Version None)
Quarter: 2007Q4

REPORT INFORMATION
  Report Type: 
  Country: None (occurrence: None)
  Receive Date: 20071008
  Receipt Date: 20070925
  Transmission Date: 20080405
  Serious: Yes (Other)
  Sender: FDA-Public Use
  Company Number: US-JNJFOC-20070905589

PATIENT
  Age: 8 Year
  Sex: Male

DRUGS (4)
  1. CONCERTA [Suspect]
     Indication: ATTENTION DEFICIT/HYPERACTIVITY DISORDER
     Route: 048
  2. DEPAKOTE [Concomitant]
  3. SEROQUEL [Concomitant]
  4. TENEX [Concomitant]

REACTIONS (3)
  - ARRHYTHMIA [None]
  - ELECTROCARDIOGRAM T WAVE ABNORMAL [None]
  - SUPRAVENTRICULAR EXTRASYSTOLES [None]
